FAERS Safety Report 6130121-7 (Version None)
Quarter: 2009Q1

REPORT INFORMATION
  Report Type: 
  Country: None (occurrence: None)
  Receive Date: 20090324
  Receipt Date: 20090316
  Transmission Date: 20090719
  Serious: Yes (Other)
  Sender: FDA-Public Use
  Company Number: PHHY2009US02027

PATIENT
  Sex: Female
  Weight: 76.7 kg

DRUGS (4)
  1. GLEEVEC [Suspect]
     Indication: GASTROINTESTINAL STROMAL TUMOUR
     Dosage: 600 MG DAILY
     Route: 048
  2. GLEEVEC [Suspect]
     Dosage: 400 MG DAILY
     Route: 048
     Dates: start: 20080701, end: 20081201
  3. NORVASC [Concomitant]
     Dosage: 10 MG DAILY
     Route: 048
  4. PRICOSE [Concomitant]
     Dosage: 20 MG
     Route: 048

REACTIONS (4)
  - DYSPNOEA [None]
  - OBSTRUCTIVE AIRWAYS DISORDER [None]
  - PHARYNGEAL OEDEMA [None]
  - SWELLING FACE [None]
